FAERS Safety Report 13125572 (Version 1)
Quarter: 2017Q1

REPORT INFORMATION
  Report Type: Spontaneous
  Country: FR (occurrence: FR)
  Receive Date: 20170118
  Receipt Date: 20170118
  Transmission Date: 20170428
  Serious: Yes (Hospitalization)
  Sender: FDA-Public Use
  Company Number: FR-PFIZER INC-2017016885

PATIENT
  Age: 91 Year
  Sex: Female

DRUGS (8)
  1. EFFERALGAN [Concomitant]
     Active Substance: ACETAMINOPHEN
     Dosage: 100 MG, 1X/DAY
  2. CELESTENE /00008501/ [Concomitant]
     Active Substance: BETAMETHASONE
  3. HYDROCORTISONE /00028602/ [Concomitant]
     Active Substance: HYDROCORTISONE
  4. CEFTRIAXONE SODIUM. [Concomitant]
     Active Substance: CEFTRIAXONE SODIUM
  5. AMIODARONE [Suspect]
     Active Substance: AMIODARONE
     Dosage: 100 MG, 1X/DAY
     Route: 048
     Dates: end: 20170102
  6. KARDEGIC [Concomitant]
     Active Substance: ASPIRIN LYSINE
  7. RABEPRAZOLE SODIUM. [Concomitant]
     Active Substance: RABEPRAZOLE SODIUM
  8. ALDACTONE [Suspect]
     Active Substance: SPIRONOLACTONE
     Indication: HYPERTENSION
     Dosage: 25 MG, 1X/DAY
     Route: 048
     Dates: end: 201612

REACTIONS (1)
  - Blood thyroid stimulating hormone decreased [Not Recovered/Not Resolved]

NARRATIVE: CASE EVENT DATE: 20161226
